FAERS Safety Report 7364040-5 (Version None)
Quarter: 2011Q1

REPORT INFORMATION
  Report Type: 
  Country: None (occurrence: None)
  Receive Date: 20110321
  Receipt Date: 20110307
  Transmission Date: 20110831
  Serious: Yes (Hospitalization)
  Sender: FDA-Public Use
  Company Number: PHHY2011FR19445

PATIENT
  Sex: Male

DRUGS (10)
  1. MOPRAL [Concomitant]
     Dosage: UNK
  2. TRIATEC [Concomitant]
     Dosage: UNK
  3. DOSTINEX [Concomitant]
     Dosage: UNK
  4. AFINITOR [Suspect]
     Dosage: 10 MG, QD
     Route: 048
     Dates: start: 20101126, end: 20110112
  5. LERCAN [Concomitant]
     Dosage: UNK
  6. PAROXETINE HCL [Concomitant]
     Dosage: UNK
  7. STEROGYL [Concomitant]
     Dosage: UNK
  8. PRAVASTATIN [Concomitant]
     Dosage: UNK
  9. GLUCOPHAGE [Concomitant]
     Dosage: UNK
  10. KARDEGIC [Concomitant]
     Dosage: UNK

REACTIONS (7)
  - INTERSTITIAL LUNG DISEASE [None]
  - GENERAL PHYSICAL HEALTH DETERIORATION [None]
  - EPISTAXIS [None]
  - WEIGHT DECREASED [None]
  - RED BLOOD CELL SEDIMENTATION RATE INCREASED [None]
  - DECREASED APPETITE [None]
  - DYSPNOEA [None]
